FAERS Safety Report 24112140 (Version 4)
Quarter: 2024Q3

REPORT INFORMATION
  Report Type: Spontaneous
  Country: AT (occurrence: AT)
  Receive Date: 20240719
  Receipt Date: 20240826
  Transmission Date: 20241017
  Serious: Yes (Other)
  Sender: PFIZER
  Company Number: AT-PFIZER INC-PV202400093151

PATIENT
  Age: 29 Year
  Sex: Male

DRUGS (1)
  1. SOMAVERT [Suspect]
     Active Substance: PEGVISOMANT
     Indication: Acromegaly
     Dosage: INJECTS ONLY EVERY 4 DAYS
     Dates: start: 202403

REACTIONS (1)
  - Autoimmune disorder [Not Recovered/Not Resolved]

NARRATIVE: CASE EVENT DATE: 20240301
